FAERS Safety Report 10985680 (Version 1)
Quarter: 2015Q2

REPORT INFORMATION
  Report Type: Spontaneous
  Country: US (occurrence: US)
  Receive Date: 20150404
  Receipt Date: 20150404
  Transmission Date: 20150821
  Serious: No
  Sender: FDA-Public Use
  Company Number: US-SA-2013SA109952

PATIENT
  Age: 42 Year
  Sex: Male

DRUGS (1)
  1. ALLEGRA-D [Suspect]
     Active Substance: FEXOFENADINE\PSEUDOEPHEDRINE
     Indication: UNEVALUABLE EVENT
     Route: 048
     Dates: start: 20131024

REACTIONS (1)
  - Drug ineffective [Unknown]
